FAERS Safety Report 14945288 (Version 1)
Quarter: 2018Q2

REPORT INFORMATION
  Report Type: Spontaneous
  Country: US (occurrence: US)
  Receive Date: 20180529
  Receipt Date: 20180529
  Transmission Date: 20180711
  Serious: No
  Sender: FDA-Public Use
  Company Number: US-BIODELIVERY SCIENCES INTERNATIONAL-2017BDSI0204

PATIENT
  Age: 56 Year
  Sex: Male
  Weight: 102.15 kg

DRUGS (3)
  1. BUPRENORPHINE. [Suspect]
     Active Substance: BUPRENORPHINE
     Route: 002
     Dates: start: 2017
  2. BUPRENORPHINE. [Suspect]
     Active Substance: BUPRENORPHINE
     Indication: PAIN
     Route: 002
     Dates: start: 20170818, end: 20170822
  3. BUPRENORPHINE. [Suspect]
     Active Substance: BUPRENORPHINE
     Route: 002
     Dates: start: 20170823

REACTIONS (8)
  - Therapeutic response decreased [Recovered/Resolved]
  - Oral administration complication [Recovered/Resolved]
  - Product adhesion issue [Unknown]
  - Headache [Recovered/Resolved]
  - Product physical issue [Unknown]
  - Insomnia [Recovered/Resolved]
  - Drug administration error [Unknown]
  - Product use complaint [Unknown]

NARRATIVE: CASE EVENT DATE: 2017
